FAERS Safety Report 4579785-X (Version None)
Quarter: 2005Q1

REPORT INFORMATION
  Report Type: 
  Country: None (occurrence: None)
  Receive Date: 20050210
  Receipt Date: 20050125
  Transmission Date: 20050727
  Serious: No
  Sender: FDA-Public Use
  Company Number: 2004106334

PATIENT
  Age: 58 Year
  Sex: Female

DRUGS (7)
  1. VIAGRA [Suspect]
     Indication: PULMONARY HYPERTENSION
     Dosage: 100 MG (25 MG, 4 IN 1 D), ORAL
     Route: 048
     Dates: start: 20041101
  2. FUROSEMIDE [Concomitant]
  3. SPIRONOLACTONE [Concomitant]
  4. FOLIC ACID [Concomitant]
  5. MESALAMINE [Concomitant]
  6. MAGNESIUM (MAGNESIUM) [Concomitant]
  7. ACENOCOUMAROL (ACENOCOUMAROL) [Concomitant]

REACTIONS (5)
  - ASCITES [None]
  - DRUG INEFFECTIVE [None]
  - EOSINOPHILIA [None]
  - HEPATIC CIRRHOSIS [None]
  - LYMPHOCYTE COUNT INCREASED [None]
